FAERS Safety Report 6052475-2 (Version None)
Quarter: 2009Q1

REPORT INFORMATION
  Report Type: 
  Country: None (occurrence: None)
  Receive Date: 20090121
  Receipt Date: 20080711
  Transmission Date: 20090719
  Serious: Yes (Other)
  Sender: FDA-Public Use
  Company Number: US-WYE-H05096708

PATIENT
  Age: 53 Year
  Sex: Female

DRUGS (7)
  1. PREMPHASE 14/14 [Suspect]
  2. ACTIVELLA [Suspect]
  3. COMBIPATCH [Suspect]
  4. ESTROGENS SOL/INJ [Suspect]
  5. ESTROPIPATE [Suspect]
  6. ORTHO-EST [Suspect]
  7. PREFEST [Suspect]

REACTIONS (1)
  - BREAST CANCER [None]
